FAERS Safety Report 9172429 (Version 1)
Quarter: 2012Q4

REPORT INFORMATION
  Report Type: Report from Study
  Country: US (occurrence: US)
  Receive Date: 20120911
  Receipt Date: 20120911
  Transmission Date: 20130627
  Serious: Yes (Life-Threatening, Congenital Anomaly)
  Sender: FDA-Public Use
  Company Number: US-TEVA-357654USA

PATIENT
  Age: 0 None
  Sex: Male

DRUGS (1)
  1. PROVIGIL [Suspect]
     Route: 065

REACTIONS (1)
  - Congenital torticollis [Unknown]
